FAERS Safety Report 11868642 (Version 4)
Quarter: 2016Q1

REPORT INFORMATION
  Report Type: Spontaneous
  Country: RU (occurrence: RU)
  Receive Date: 20151225
  Receipt Date: 20160215
  Transmission Date: 20160526
  Serious: Yes (Death, Hospitalization)
  Sender: FDA-Public Use
  Company Number: RU-ROCHE-1682184

PATIENT
  Age: 61 Year
  Sex: Female

DRUGS (24)
  1. MABTHERA [Suspect]
     Active Substance: RITUXIMAB
     Dosage: 6 COURSES
     Route: 042
     Dates: start: 201212, end: 201304
  2. MABTHERA [Suspect]
     Active Substance: RITUXIMAB
     Dosage: 4 COURSES
     Route: 042
     Dates: start: 201506, end: 201509
  3. CYCLOPHOSPHAMIDE. [Concomitant]
     Active Substance: CYCLOPHOSPHAMIDE
     Dosage: 4 COURSES
     Route: 065
     Dates: start: 201503, end: 201505
  4. FLUDARABINE [Concomitant]
     Active Substance: FLUDARABINE PHOSPHATE
     Dosage: 7 COURSES
     Route: 065
     Dates: start: 200906, end: 201003
  5. MABTHERA [Suspect]
     Active Substance: RITUXIMAB
     Route: 042
     Dates: start: 20090530
  6. VINCRISTINE [Concomitant]
     Active Substance: VINCRISTINE
     Dosage: 6 COURSES
     Route: 065
     Dates: start: 201212, end: 201304
  7. FLUDARABINE [Concomitant]
     Active Substance: FLUDARABINE PHOSPHATE
     Dosage: INITIAL THERAPY - 1 CYCLE
     Route: 065
     Dates: start: 200905, end: 200906
  8. PREDNISONE. [Concomitant]
     Active Substance: PREDNISONE
     Dosage: 4 COURSES
     Route: 065
     Dates: start: 201503, end: 201505
  9. MABTHERA [Suspect]
     Active Substance: RITUXIMAB
     Dosage: 9 CYCLES- SUPPORTIVE TREATMENT
     Route: 042
     Dates: start: 201005, end: 201205
  10. MABTHERA [Suspect]
     Active Substance: RITUXIMAB
     Dosage: MAINTAINENCE
     Route: 042
     Dates: start: 201309, end: 201501
  11. DOXORUBICIN [Concomitant]
     Active Substance: DOXORUBICIN
     Dosage: 4 COURSES
     Route: 065
     Dates: start: 201503, end: 201505
  12. FLUDARABINE [Concomitant]
     Active Substance: FLUDARABINE PHOSPHATE
     Dosage: 2 COURSES
     Route: 065
     Dates: start: 201307, end: 201308
  13. FLUDARABINE [Concomitant]
     Active Substance: FLUDARABINE PHOSPHATE
     Dosage: 4 COURSES
     Route: 048
     Dates: start: 201506, end: 201509
  14. CYCLOPHOSPHAMIDE. [Concomitant]
     Active Substance: CYCLOPHOSPHAMIDE
     Dosage: 7 COURSES
     Route: 065
     Dates: start: 200906, end: 201003
  15. CYCLOPHOSPHAMIDE. [Concomitant]
     Active Substance: CYCLOPHOSPHAMIDE
     Dosage: 4 COURSES
     Route: 042
     Dates: start: 201506, end: 201509
  16. DOXORUBICIN [Concomitant]
     Active Substance: DOXORUBICIN
     Dosage: INITIAL THERAPY - 1 CYCLE
     Route: 065
     Dates: start: 200905, end: 200906
  17. DOXORUBICIN [Concomitant]
     Active Substance: DOXORUBICIN
     Dosage: 6 COURSES
     Route: 065
     Dates: start: 201212, end: 201304
  18. MABTHERA [Suspect]
     Active Substance: RITUXIMAB
     Indication: LYMPHOCYTIC LYMPHOMA
     Dosage: 7 COURSES
     Route: 042
     Dates: start: 200906, end: 201003
  19. MABTHERA [Suspect]
     Active Substance: RITUXIMAB
     Dosage: 4 COURSES
     Route: 042
     Dates: start: 201503, end: 201505
  20. PREDNISONE. [Concomitant]
     Active Substance: PREDNISONE
     Dosage: 6 COURSES
     Route: 065
     Dates: start: 201212, end: 201304
  21. DEXAMETHASONE. [Concomitant]
     Active Substance: DEXAMETHASONE
     Dosage: 2 CYCLES?4 COURSES
     Route: 030
     Dates: start: 201506, end: 201509
  22. MABTHERA [Suspect]
     Active Substance: RITUXIMAB
     Dosage: 2 COURSES
     Route: 042
     Dates: start: 201307, end: 201308
  23. CYCLOPHOSPHAMIDE. [Concomitant]
     Active Substance: CYCLOPHOSPHAMIDE
     Dosage: 6 COURSES
     Route: 065
     Dates: start: 201212, end: 201304
  24. VINCRISTINE [Concomitant]
     Active Substance: VINCRISTINE
     Dosage: 4 COURSES
     Route: 065
     Dates: start: 201503, end: 201505

REACTIONS (7)
  - Neurological symptom [Not Recovered/Not Resolved]
  - Demyelination [Not Recovered/Not Resolved]
  - Brain oedema [Not Recovered/Not Resolved]
  - Epilepsy [Not Recovered/Not Resolved]
  - Progressive multifocal leukoencephalopathy [Fatal]
  - Hallucination [Not Recovered/Not Resolved]
  - Mental disorder [Not Recovered/Not Resolved]

NARRATIVE: CASE EVENT DATE: 201508
